FAERS Safety Report 14719252 (Version 1)
Quarter: 2018Q2

REPORT INFORMATION
  Report Type: Spontaneous
  Country: US (occurrence: US)
  Receive Date: 20180405
  Receipt Date: 20180405
  Transmission Date: 20180711
  Serious: No
  Sender: FDA-Public Use
  Company Number: US-B.I. PHARMACEUTICALS,INC./RIDGEFIELD-2018-BI-018365

PATIENT
  Sex: Male

DRUGS (1)
  1. FLOMAX [Suspect]
     Active Substance: TAMSULOSIN HYDROCHLORIDE
     Indication: PRODUCT USED FOR UNKNOWN INDICATION
     Route: 048

REACTIONS (13)
  - Vision blurred [Unknown]
  - Asthenia [Unknown]
  - Expulsion of medication [Unknown]
  - Fatigue [Unknown]
  - Dyspnoea [Unknown]
  - Nasal congestion [Unknown]
  - Headache [Unknown]
  - Malaise [Unknown]
  - Pruritus generalised [Unknown]
  - Dizziness [Unknown]
  - Hypoaesthesia [Unknown]
  - Orthostatic hypotension [Unknown]
  - Confusional state [Unknown]
